FAERS Safety Report 7387610-7 (Version None)
Quarter: 2011Q1

REPORT INFORMATION
  Report Type: 
  Country: None (occurrence: None)
  Receive Date: 20110331
  Receipt Date: 20110325
  Transmission Date: 20110831
  Serious: Yes (Death, Other)
  Sender: FDA-Public Use
  Company Number: US-GILEAD-2011-0037681

PATIENT
  Sex: Female

DRUGS (2)
  1. LETAIRIS [Suspect]
     Indication: PULMONARY HYPERTENSION
     Route: 048
     Dates: start: 20100811, end: 20110302
  2. LETAIRIS [Suspect]
     Indication: SCLERODERMA

REACTIONS (3)
  - DEATH [None]
  - FLUID RETENTION [None]
  - DYSPNOEA [None]
